FAERS Safety Report 8460267-X (Version None)
Quarter: 2012Q2

REPORT INFORMATION
  Report Type: 
  Country: None (occurrence: None)
  Receive Date: 20120323
  Receipt Date: 20111222
  Transmission Date: 20120825
  Serious: Yes (Death)
  Sender: FDA-Public Use
  Company Number: 163-21880-11091705

PATIENT
  Age: 63 Year
  Sex: Female

DRUGS (21)
  1. LISINOPRIL [Concomitant]
  2. VERAPAMIL [Concomitant]
  3. DEXAMETHASONE [Concomitant]
  4. CLONIDINE [Concomitant]
  5. LYRICA [Concomitant]
  6. PENICILLIN (BENZYLPENICILLIN) [Concomitant]
  7. ATENOLOL [Concomitant]
  8. FOSAMAX [Concomitant]
  9. ADVAIR DISKUS 100/50 [Concomitant]
  10. LASIX [Concomitant]
  11. DEPHALEXIN [Concomitant]
  12. ALLOPURINOL [Concomitant]
  13. BACLOFEN [Concomitant]
  14. RESTASIS [Concomitant]
  15. PAMIDRONATE DISODIUM [Concomitant]
  16. ASPIRIN [Concomitant]
  17. SPIRIVIA (TIOTROPIUM BROMIDE) [Concomitant]
  18. REVLIMID [Suspect]
     Indication: MULTIPLE MYELOMA
     Dosage: 25 MG, DAILY X 21 DAYS, PO
     Route: 048
     Dates: start: 20110913, end: 20111017
  19. FERROUS SULFATE TAB [Concomitant]
  20. METFORMIN HCL [Concomitant]
  21. PERCOCET [Concomitant]

REACTIONS (1)
  - PNEUMONIA [None]
